FAERS Safety Report 5953664-5 (Version None)
Quarter: 2008Q4

REPORT INFORMATION
  Report Type: 
  Country: None (occurrence: None)
  Receive Date: 20081114
  Receipt Date: 20081015
  Transmission Date: 20090506
  Serious: Yes (Other)
  Sender: FDA-Public Use
  Company Number: B0546153A

PATIENT
  Age: 60 Year
  Sex: Female

DRUGS (2)
  1. ARIXTRA [Suspect]
     Route: 058
     Dates: start: 20080706, end: 20080706
  2. SYMBICORT TURBOHALER [Concomitant]
     Indication: DRUG USE FOR UNKNOWN INDICATION
     Route: 065

REACTIONS (4)
  - DIZZINESS [None]
  - LOSS OF CONSCIOUSNESS [None]
  - MALAISE [None]
  - VERTIGO [None]
